FAERS Safety Report 20661728 (Version 2)
Quarter: 2022Q2

REPORT INFORMATION
  Report Type: Report from Study
  Country: US (occurrence: US)
  Receive Date: 20220401
  Receipt Date: 20220421
  Transmission Date: 20220721
  Serious: No
  Sender: FDA-Public Use
  Company Number: US-ORGANON-O2203USA002488

PATIENT
  Age: 34 Year
  Sex: Female
  Weight: 87.075 kg

DRUGS (1)
  1. IMPLANON [Suspect]
     Active Substance: ETONOGESTREL
     Dosage: 1 DOSAGE FORM
     Route: 059
     Dates: start: 20211209, end: 20220210

REACTIONS (5)
  - Medical device site discomfort [Unknown]
  - Implant site mass [Unknown]
  - Implant site discharge [Unknown]
  - Implant site pain [Unknown]
  - Pain [Unknown]

NARRATIVE: CASE EVENT DATE: 20220202
